FAERS Safety Report 7965658-9 (Version None)
Quarter: 2011Q4

REPORT INFORMATION
  Report Type: 
  Country: None (occurrence: None)
  Receive Date: 20111208
  Receipt Date: 20111111
  Transmission Date: 20120403
  Serious: Yes (Other)
  Sender: FDA-Public Use
  Company Number: ES-TEVA-306034ISR

PATIENT
  Age: 80 Year
  Sex: Male

DRUGS (6)
  1. OMEPRAZOLE [Concomitant]
     Dosage: 20 MILLIGRAM;
     Route: 048
  2. EUCREAS (METFORMIN/VILDAGLIPTIN) [Concomitant]
     Indication: DIABETES MELLITUS
     Dosage: 50/850 MG
     Route: 048
  3. SINEMET [Concomitant]
     Indication: PARKINSON'S DISEASE
     Dosage: 25/100 MG
  4. AZILECT [Suspect]
     Indication: PARKINSON'S DISEASE
     Dosage: 1 MILLIGRAM;
     Route: 048
     Dates: start: 20100623, end: 20110114
  5. ESCITALOPRAM [Concomitant]
     Indication: DEPRESSION
     Dosage: 10 MILLIGRAM;
     Route: 048
  6. SINEMET [Concomitant]
     Indication: PARKINSON'S DISEASE
     Dosage: 25/250 MG
     Route: 048

REACTIONS (1)
  - THROMBOCYTOPENIA [None]
